FAERS Safety Report 6028903-5 (Version None)
Quarter: 2009Q1

REPORT INFORMATION
  Report Type: 
  Country: None (occurrence: None)
  Receive Date: 20090105
  Receipt Date: 20090105
  Transmission Date: 20090719
  Serious: Yes (Hospitalization)
  Sender: FDA-Public Use
  Company Number: None

PATIENT
  Age: 71 Year
  Sex: Male
  Weight: 70.7611 kg

DRUGS (15)
  1. ERLOTINIB 150 MG [Suspect]
     Indication: NON-SMALL CELL LUNG CANCER
     Dosage: 150 MG DAILY 047 PO
     Route: 048
     Dates: start: 20080730, end: 20081202
  2. BEVACIZUMAB 15 MG/KG [Suspect]
     Indication: NON-SMALL CELL LUNG CANCER
     Dosage: 15 MG/KG EVERY 3 WEEKS 041 IV
     Route: 042
     Dates: start: 20080730, end: 20081202
  3. ZOFRAN [Concomitant]
  4. FENTANYL-100 [Concomitant]
  5. MARINOL [Concomitant]
  6. RELISTOR [Concomitant]
  7. CORTISONE ACETATE TAB [Concomitant]
  8. SYTHROID [Concomitant]
  9. TRAZODONE HCL [Concomitant]
  10. ZOCOR [Concomitant]
  11. LORAZEPAM [Concomitant]
  12. PREVACID [Concomitant]
  13. MULTI-VITAMIN [Concomitant]
  14. DDAVP [Concomitant]
  15. SENNA [Concomitant]

REACTIONS (11)
  - CONFUSIONAL STATE [None]
  - DEHYDRATION [None]
  - DIARRHOEA [None]
  - FAECAL INCONTINENCE [None]
  - LETHARGY [None]
  - LIVER FUNCTION TEST ABNORMAL [None]
  - PYREXIA [None]
  - RENAL FAILURE ACUTE [None]
  - RHABDOMYOLYSIS [None]
  - SOMNOLENCE [None]
  - UNRESPONSIVE TO STIMULI [None]
